FAERS Safety Report 9499562 (Version 6)
Quarter: 2015Q2

REPORT INFORMATION
  Report Type: Spontaneous
  Country: TR (occurrence: TR)
  Receive Date: 20130905
  Receipt Date: 20150406
  Transmission Date: 20150821
  Serious: Yes (Hospitalization, Other)
  Sender: FDA-Public Use
  Company Number: TR-AMGEN-TURSP2013014788

PATIENT
  Age: 37 Year
  Sex: Female

DRUGS (2)
  1. ENBREL [Suspect]
     Active Substance: ETANERCEPT
     Indication: ANKYLOSING SPONDYLITIS
     Dosage: 50 MG, WEEKLY
     Route: 058
     Dates: start: 20110516, end: 20130729
  2. ENDOL                              /00003801/ [Concomitant]
     Indication: ANKYLOSING SPONDYLITIS
     Dosage: UNK
     Route: 054

REACTIONS (18)
  - Agitation [Not Recovered/Not Resolved]
  - Feeling cold [Recovered/Resolved]
  - General physical health deterioration [Unknown]
  - Pain [Not Recovered/Not Resolved]
  - Injection site vesicles [Not Recovered/Not Resolved]
  - Drug ineffective [Not Recovered/Not Resolved]
  - Injection site pain [Not Recovered/Not Resolved]
  - Condition aggravated [Unknown]
  - Joint swelling [Not Recovered/Not Resolved]
  - Asthenia [Recovered/Resolved]
  - Arthritis [Unknown]
  - Infection [Recovered/Resolved]
  - Renal failure [Not Recovered/Not Resolved]
  - Influenza [Not Recovered/Not Resolved]
  - Tremor [Recovered/Resolved]
  - Inflammation [Not Recovered/Not Resolved]
  - Arthropathy [Recovering/Resolving]
  - Anaemia [Unknown]

NARRATIVE: CASE EVENT DATE: 201211
